FAERS Safety Report 14321946 (Version 1)
Quarter: 2017Q4

REPORT INFORMATION
  Report Type: Report from Study
  Country: MX (occurrence: MX)
  Receive Date: 20171225
  Receipt Date: 20171225
  Transmission Date: 20180321
  Serious: Yes (Disabling)
  Sender: FDA-Public Use
  Company Number: MX-ROCHE-2040602

PATIENT
  Age: 54 Year
  Sex: Female

DRUGS (17)
  1. RANITIDINE. [Concomitant]
     Active Substance: RANITIDINE
     Route: 048
  2. ACETAMINOPHEN. [Concomitant]
     Active Substance: ACETAMINOPHEN
     Dosage: DURING 5 DAYS
     Route: 065
  3. GABAPENTIN. [Concomitant]
     Active Substance: GABAPENTIN
     Indication: ANXIETY
  4. ZINNAT [Concomitant]
     Active Substance: CEFUROXIME AXETIL
  5. TRASTUZUMAB. [Suspect]
     Active Substance: TRASTUZUMAB
     Indication: HER-2 POSITIVE BREAST CANCER
     Route: 042
  6. TRADOL [Concomitant]
     Active Substance: TRAMADOL HYDROCHLORIDE
  7. GABAPENTIN. [Concomitant]
     Active Substance: GABAPENTIN
     Indication: PARAESTHESIA
  8. ONDANSETRON [Concomitant]
     Active Substance: ONDANSETRON
  9. OMEPRAZOLE. [Concomitant]
     Active Substance: OMEPRAZOLE
     Dosage: EVERY DAY AFTER THE BREAKFAST
     Route: 065
  10. DEXAMETHASONE. [Suspect]
     Active Substance: DEXAMETHASONE
     Indication: HER-2 POSITIVE BREAST CANCER
     Route: 042
  11. TEMPRA [Concomitant]
     Active Substance: ACETAMINOPHEN
  12. PACLITAXEL. [Suspect]
     Active Substance: PACLITAXEL
     Indication: HER-2 POSITIVE BREAST CANCER
     Route: 042
  13. DYNASTAT [Concomitant]
     Active Substance: PARECOXIB SODIUM
  14. AMOXICILLIN. [Concomitant]
     Active Substance: AMOXICILLIN
     Dosage: FOR 7 DAYS
     Route: 065
  15. SENNOSIDES. [Concomitant]
     Active Substance: SENNOSIDES
     Indication: CONSTIPATION
     Dosage: AT NIGHTS
     Route: 048
  16. CHLORPHENAMINE [Concomitant]
     Active Substance: CHLORPHENIRAMINE MALEATE
  17. IBUPROFEN. [Concomitant]
     Active Substance: IBUPROFEN
     Dosage: DURING 5 DAYS
     Route: 065

REACTIONS (16)
  - Haemorrhoids [Unknown]
  - Umbilical hernia [Recovered/Resolved]
  - Pain [Unknown]
  - Dizziness [Not Recovered/Not Resolved]
  - Epistaxis [Unknown]
  - Hypoaesthesia [Unknown]
  - Insomnia [Not Recovered/Not Resolved]
  - Weight decreased [Unknown]
  - Eczema [Not Recovered/Not Resolved]
  - Blood test abnormal [Unknown]
  - Onychomadesis [Unknown]
  - Skin burning sensation [Not Recovered/Not Resolved]
  - Dry skin [Not Recovered/Not Resolved]
  - Constipation [Unknown]
  - Fatigue [Not Recovered/Not Resolved]
  - Anxiety [Unknown]
